FAERS Safety Report 4525843-5 (Version None)
Quarter: 2004Q4

REPORT INFORMATION
  Report Type: 
  Country: None (occurrence: None)
  Receive Date: 20041124
  Receipt Date: 20031112
  Transmission Date: 20050328
  Serious: Yes (Hospitalization)
  Sender: FDA-Public Use
  Company Number: 2003118253

PATIENT
  Age: 88 Year
  Sex: Male
  Weight: 71.2147 kg

DRUGS (11)
  1. TIKOSYN [Suspect]
     Indication: ILL-DEFINED DISORDER
     Dosage: (DAILY), ORAL
     Route: 048
     Dates: start: 20030301
  2. ATORVASTATIN (ATORVASTATIN) [Concomitant]
  3. VICODIN [Concomitant]
  4. METFORMIN HCL [Concomitant]
  5. AMLODIPINE BESYLATE [Concomitant]
  6. WARFARIN SODIUM [Concomitant]
  7. ALPRAZOLAM [Concomitant]
  8. FUROSEMIDE [Concomitant]
  9. CANDESARTAN CILEXETIL (CANDESARTAN CILEXETIL) [Concomitant]
  10. PREDNISOLONE [Concomitant]
  11. LISINOPRIL [Concomitant]

REACTIONS (8)
  - ADVERSE DRUG REACTION [None]
  - ADVERSE EVENT [None]
  - ATRIAL FIBRILLATION [None]
  - BODY HEIGHT DECREASED [None]
  - BONE PAIN [None]
  - DIARRHOEA [None]
  - INTERVERTEBRAL DISC COMPRESSION [None]
  - MYALGIA [None]
